FAERS Safety Report 7505315-6 (Version None)
Quarter: 2011Q2

REPORT INFORMATION
  Report Type: 
  Country: None (occurrence: None)
  Receive Date: 20110526
  Receipt Date: 20110523
  Transmission Date: 20111010
  Serious: Yes (Hospitalization)
  Sender: FDA-Public Use
  Company Number: SE-ABBOTT-11P-150-0727917-00

PATIENT
  Age: 61 Year
  Sex: Female

DRUGS (5)
  1. HEMINEVRIN [Concomitant]
     Indication: PRODUCT USED FOR UNKNOWN INDICATION
  2. NITRAZEPAM [Concomitant]
     Indication: PRODUCT USED FOR UNKNOWN INDICATION
  3. ASPIRIN [Concomitant]
     Indication: PRODUCT USED FOR UNKNOWN INDICATION
  4. VALPROATE SODIUM [Suspect]
     Indication: EPILEPSY
     Dates: start: 19980101, end: 20101102
  5. VALPROATE SODIUM [Suspect]
     Indication: EPILEPSY
     Dates: start: 19960101, end: 19980101

REACTIONS (6)
  - FALL [None]
  - WEIGHT INCREASED [None]
  - COAGULATION TIME PROLONGED [None]
  - DEMENTIA [None]
  - BALANCE DISORDER [None]
  - BLOOD SODIUM DECREASED [None]
